FAERS Safety Report 14446302 (Version 1)
Quarter: 2018Q1

REPORT INFORMATION
  Report Type: Spontaneous
  Country: US (occurrence: US)
  Receive Date: 20180126
  Receipt Date: 20180126
  Transmission Date: 20180509
  Serious: No
  Sender: FDA-Public Use
  Company Number: US-PFIZER INC-2017518271

PATIENT
  Age: 20 Year
  Sex: Male

DRUGS (2)
  1. XELJANZ [Suspect]
     Active Substance: TOFACITINIB CITRATE
     Indication: VITILIGO
     Dosage: 5 MG, 2X/DAY
     Route: 048
  2. XELJANZ [Suspect]
     Active Substance: TOFACITINIB CITRATE
     Indication: NAIL DISORDER
     Dosage: 5 MG, UNK

REACTIONS (3)
  - Upper respiratory tract infection [Unknown]
  - Drug effective for unapproved indication [Recovering/Resolving]
  - Product use in unapproved indication [Unknown]
